FAERS Safety Report 6771261-9 (Version None)
Quarter: 2010Q2

REPORT INFORMATION
  Report Type: 
  Country: None (occurrence: None)
  Receive Date: 20100616
  Receipt Date: 20100603
  Transmission Date: 20101027
  Serious: Yes (Hospitalization)
  Sender: FDA-Public Use
  Company Number: PHHY2010AU31354

PATIENT
  Sex: Female
  Weight: 114 kg

DRUGS (1)
  1. CLOZARIL [Suspect]
     Dosage: 450 MG, DAILY
     Route: 048
     Dates: start: 19930914

REACTIONS (4)
  - MALAISE [None]
  - MENTAL STATUS CHANGES [None]
  - PSYCHOTIC DISORDER [None]
  - TREATMENT NONCOMPLIANCE [None]
